FAERS Safety Report 21457023 (Version 5)
Quarter: 2022Q4

REPORT INFORMATION
  Report Type: Report from Study
  Country: US (occurrence: US)
  Receive Date: 20221014
  Receipt Date: 20221114
  Transmission Date: 20230112
  Serious: Yes (Hospitalization, Other)
  Sender: FDA-Public Use
  Company Number: US-ABBVIE-22K-163-4515476-00

PATIENT
  Sex: Male
  Weight: 78.925 kg

DRUGS (10)
  1. VENCLEXTA [Suspect]
     Active Substance: VENETOCLAX
     Indication: Acute myeloid leukaemia
     Dosage: STRENGTH: 400MG
     Route: 048
     Dates: start: 202208, end: 20220913
  2. VENCLEXTA [Suspect]
     Active Substance: VENETOCLAX
     Indication: Acute myeloid leukaemia
     Dosage: STRENGTH: 200MG
     Route: 048
     Dates: start: 20220816, end: 20220816
  3. VENCLEXTA [Suspect]
     Active Substance: VENETOCLAX
     Indication: Acute myeloid leukaemia
     Dosage: STRENGTH: 400MG
     Route: 048
     Dates: start: 20221010
  4. VENCLEXTA [Suspect]
     Active Substance: VENETOCLAX
     Indication: Acute myeloid leukaemia
     Dosage: STRENGTH: 100MG
     Route: 048
     Dates: start: 20220815, end: 20220815
  5. VENCLEXTA [Suspect]
     Active Substance: VENETOCLAX
     Indication: Acute myeloid leukaemia
     Dosage: STRENGTH: 400MG?END DATE AUG 2022
     Route: 048
     Dates: start: 20220817
  6. VENCLEXTA [Suspect]
     Active Substance: VENETOCLAX
     Indication: Acute myeloid leukaemia
     Dosage: STRENGTH: 100MG?END DATE  IS 2022
     Route: 048
     Dates: start: 20220809
  7. VIDAZA [Concomitant]
     Active Substance: AZACITIDINE
     Indication: Acute myeloid leukaemia
  8. Pfizer Covid 19 Vaccination [Concomitant]
     Indication: COVID-19 immunisation
     Dosage: 1 IN ONCE(1ST DOSE)
     Route: 030
     Dates: start: 20210702, end: 20210702
  9. Pfizer Covid 19 Vaccination [Concomitant]
     Indication: COVID-19 immunisation
     Dosage: 1 IN ONCE(3RD DOSE)
     Route: 030
     Dates: start: 20210922, end: 20210922
  10. Pfizer Covid 19 Vaccination [Concomitant]
     Indication: COVID-19 immunisation
     Dosage: 1 IN ONCE(2ND DOSE)
     Route: 030
     Dates: start: 20210726, end: 20210726

REACTIONS (27)
  - Renal disorder [Not Recovered/Not Resolved]
  - Haemoglobin decreased [Not Recovered/Not Resolved]
  - Full blood count abnormal [Not Recovered/Not Resolved]
  - Platelet count abnormal [Not Recovered/Not Resolved]
  - Diarrhoea [Unknown]
  - Pain [Unknown]
  - Arthralgia [Not Recovered/Not Resolved]
  - Diarrhoea haemorrhagic [Not Recovered/Not Resolved]
  - Bone marrow myelogram abnormal [Unknown]
  - Pain [Unknown]
  - Taste disorder [Unknown]
  - Peripheral swelling [Unknown]
  - Joint swelling [Unknown]
  - Confusional state [Unknown]
  - Neutropenia [Unknown]
  - Fatigue [Unknown]
  - Arthralgia [Not Recovered/Not Resolved]
  - Myalgia [Not Recovered/Not Resolved]
  - Gait disturbance [Not Recovered/Not Resolved]
  - Asthenia [Not Recovered/Not Resolved]
  - Epistaxis [Not Recovered/Not Resolved]
  - Diarrhoea [Not Recovered/Not Resolved]
  - Dehydration [Unknown]
  - Full blood count abnormal [Not Recovered/Not Resolved]
  - Platelet count decreased [Not Recovered/Not Resolved]
  - Back pain [Not Recovered/Not Resolved]
  - Weight decreased [Unknown]

NARRATIVE: CASE EVENT DATE: 20220101
